FAERS Safety Report 11104849 (Version 6)
Quarter: 2015Q4

REPORT INFORMATION
  Report Type: Report from Study
  Country: DE (occurrence: DE)
  Receive Date: 20150511
  Receipt Date: 20151231
  Transmission Date: 20160304
  Serious: Yes (Hospitalization, Other)
  Sender: FDA-Public Use
  Company Number: PHHY2015DE056381

PATIENT
  Sex: Female
  Weight: 66 kg

DRUGS (20)
  1. TASIGNA [Suspect]
     Active Substance: NILOTINIB
     Indication: CHRONIC MYELOID LEUKAEMIA
     Dosage: 600 MG, DAILY
     Route: 048
     Dates: start: 20140506, end: 20140529
  2. TASIGNA [Suspect]
     Active Substance: NILOTINIB
     Dosage: 600 MG, DAILY
     Route: 048
     Dates: start: 20140707
  3. TASIGNA [Suspect]
     Active Substance: NILOTINIB
     Dosage: 600 MG, DAILY
     Route: 048
     Dates: start: 20140804
  4. VOMEX A [Concomitant]
     Active Substance: DIMENHYDRINATE
     Dosage: UNK
     Route: 065
     Dates: start: 20151020, end: 20151023
  5. ALLOPURINOL. [Concomitant]
     Active Substance: ALLOPURINOL
     Indication: HYPERLIPIDAEMIA
     Dosage: UNK
     Route: 065
     Dates: start: 20000303
  6. DOXEPIN [Concomitant]
     Active Substance: DOXEPIN
     Indication: PRODUCT USED FOR UNKNOWN INDICATION
     Dosage: UNK
     Route: 065
     Dates: start: 20150414, end: 20150416
  7. VOMEX A [Concomitant]
     Active Substance: DIMENHYDRINATE
     Indication: PRODUCT USED FOR UNKNOWN INDICATION
     Dosage: UNK
     Route: 065
     Dates: start: 20150507, end: 20150527
  8. TASIGNA [Suspect]
     Active Substance: NILOTINIB
     Dosage: 150 MG, DAILY
     Route: 048
     Dates: start: 20140530, end: 20140606
  9. TASIGNA [Suspect]
     Active Substance: NILOTINIB
     Dosage: 600 MG, DAILY
     Route: 048
     Dates: start: 20140606
  10. TASIGNA [Suspect]
     Active Substance: NILOTINIB
     Dosage: 300 MG, QD
     Route: 048
     Dates: start: 20150601, end: 20151024
  11. NOVAMIN//METAMIZOLE SODIUM [Concomitant]
     Indication: PRODUCT USED FOR UNKNOWN INDICATION
     Dosage: UNK UNK, TID
     Route: 065
     Dates: start: 20150217
  12. AMBROXOL [Concomitant]
     Active Substance: AMBROXOL
     Indication: PRODUCT USED FOR UNKNOWN INDICATION
     Dosage: 4 ML, TID
     Route: 065
     Dates: start: 20150416
  13. OMEPRAZOLE. [Concomitant]
     Active Substance: OMEPRAZOLE
     Indication: PRODUCT USED FOR UNKNOWN INDICATION
     Dosage: UNK
     Route: 065
     Dates: start: 20150414
  14. TASIGNA [Suspect]
     Active Substance: NILOTINIB
     Dosage: 600 MG, DAILY
     Route: 048
     Dates: start: 20141118, end: 20150506
  15. L-THYROX [Concomitant]
     Active Substance: LEVOTHYROXINE SODIUM
     Indication: HYPERTHYROIDISM
     Dosage: UNK
     Route: 065
     Dates: start: 20000303
  16. METOPROLOL [Concomitant]
     Active Substance: METOPROLOL
     Indication: HYPERTENSION
     Dosage: 50 OT, (1-0-1/2)
     Route: 065
     Dates: start: 20150416
  17. BUPRENORPHINE. [Concomitant]
     Active Substance: BUPRENORPHINE
     Indication: PRODUCT USED FOR UNKNOWN INDICATION
     Dosage: ONCE PER WEEK, 5 PATCH
     Route: 065
     Dates: start: 20150416
  18. TORASEMIDE [Concomitant]
     Active Substance: TORSEMIDE
     Indication: PRODUCT USED FOR UNKNOWN INDICATION
     Dosage: UNK
     Route: 065
     Dates: start: 20150414
  19. NOVAMIN [Concomitant]
     Active Substance: PROCHLORPERAZINE MALEATE
     Indication: PRODUCT USED FOR UNKNOWN INDICATION
     Dosage: UNK
     Route: 042
     Dates: start: 20151020, end: 20151023
  20. BELOC-ZOC MITE [Concomitant]
     Active Substance: METOPROLOL SUCCINATE
     Indication: PRODUCT USED FOR UNKNOWN INDICATION
     Dosage: UNK
     Route: 065
     Dates: start: 20000303, end: 20150415

REACTIONS (14)
  - Confusional state [Unknown]
  - Lipid metabolism disorder [Recovered/Resolved]
  - Hemiparesis [Recovered/Resolved with Sequelae]
  - Arteriosclerosis [Recovered/Resolved]
  - Peripheral arterial occlusive disease [Recovered/Resolved with Sequelae]
  - Musculoskeletal chest pain [Recovered/Resolved]
  - Fatigue [Unknown]
  - Disturbance in attention [Recovered/Resolved with Sequelae]
  - Hypokinesia [Unknown]
  - Hypertension [Not Recovered/Not Resolved]
  - Cerebral infarction [Recovered/Resolved with Sequelae]
  - Restlessness [Unknown]
  - Pain in extremity [Unknown]
  - Gait disturbance [Unknown]

NARRATIVE: CASE EVENT DATE: 20150414
